FAERS Safety Report 10593623 (Version 1)
Quarter: 2014Q4

REPORT INFORMATION
  Report Type: Spontaneous
  Country: DE (occurrence: DE)
  Receive Date: 20141119
  Receipt Date: 20141119
  Transmission Date: 20150529
  Serious: Yes (Hospitalization, Congenital Anomaly, Other)
  Sender: FDA-Public Use
  Company Number: DE-ABBVIE-14P-062-1308425-00

PATIENT
  Sex: Female

DRUGS (3)
  1. GYNVITAL GRAVIDA [Suspect]
     Active Substance: HERBALS
     Indication: MATERNAL EXPOSURE TIMING UNSPECIFIED
     Route: 064
  2. BUDESONIDE. [Suspect]
     Active Substance: BUDESONIDE
     Indication: MATERNAL EXPOSURE TIMING UNSPECIFIED
     Route: 064
  3. HUMIRA [Suspect]
     Active Substance: ADALIMUMAB
     Indication: MATERNAL EXPOSURE TIMING UNSPECIFIED
     Route: 064

REACTIONS (10)
  - Feeding disorder [Unknown]
  - Neonatal respiratory distress syndrome [Unknown]
  - Premature baby [Unknown]
  - Atrial septal defect [Recovered/Resolved]
  - Temperature regulation disorder [Unknown]
  - Patent ductus arteriosus [Recovered/Resolved]
  - Apnoea [Unknown]
  - Bradycardia [Unknown]
  - Foetal exposure during pregnancy [Unknown]
  - Congenital hydrocephalus [Not Recovered/Not Resolved]

NARRATIVE: CASE EVENT DATE: 20140216
